FAERS Safety Report 21747746 (Version 1)
Quarter: 2022Q4

REPORT INFORMATION
  Report Type: Spontaneous
  Country: US (occurrence: None)
  Receive Date: 20221216
  Receipt Date: 20221216
  Transmission Date: 20230113
  Serious: Yes (Other)
  Sender: FDA-Public Use
  Company Number: None

PATIENT
  Age: 59 Year
  Sex: Male
  Weight: 85.46 kg

DRUGS (2)
  1. ABIRATERONE [Suspect]
     Active Substance: ABIRATERONE
     Indication: Prostate cancer
     Dosage: FREQUENCY : DAILY;?
     Route: 048
     Dates: start: 20220624, end: 20221209
  2. LEUPROLIDE [Concomitant]
     Active Substance: LEUPROLIDE
     Dates: start: 20220527

REACTIONS (7)
  - Hot flush [None]
  - Loss of consciousness [None]
  - Therapy interrupted [None]
  - Therapy change [None]
  - Dyspnoea [None]
  - Asthenia [None]
  - Presyncope [None]

NARRATIVE: CASE EVENT DATE: 20221209
